FAERS Safety Report 6795936-0 (Version None)
Quarter: 2010Q2

REPORT INFORMATION
  Report Type: 
  Country: None (occurrence: None)
  Receive Date: 20100625
  Receipt Date: 20100614
  Transmission Date: 20101027
  Serious: Yes (Life-Threatening, Hospitalization)
  Sender: FDA-Public Use
  Company Number: B0660375A

PATIENT
  Sex: Male

DRUGS (9)
  1. ZOPHREN [Suspect]
     Indication: PROPHYLAXIS OF NAUSEA AND VOMITING
     Dosage: 8MG CYCLIC
     Route: 042
     Dates: start: 20100504, end: 20100525
  2. RASBURICASE [Suspect]
     Indication: PREMEDICATION
     Dosage: 15MG CYCLIC
     Route: 042
     Dates: start: 20100504, end: 20100525
  3. METHYLPREDNISOLONE [Suspect]
     Indication: PREMEDICATION
     Dosage: 80MG CYCLIC
     Route: 042
     Dates: start: 20100504, end: 20100525
  4. EMEND [Suspect]
     Indication: PROPHYLAXIS OF NAUSEA AND VOMITING
     Route: 048
     Dates: start: 20100504, end: 20100525
  5. LASIX [Concomitant]
     Indication: CARDIOMYOPATHY
     Route: 065
     Dates: start: 20100501
  6. PERINDOPRIL [Concomitant]
     Indication: CARDIOMYOPATHY
     Route: 065
     Dates: start: 20100501
  7. KARDEGIC [Concomitant]
     Indication: CARDIOMYOPATHY
     Route: 065
     Dates: start: 20100501
  8. NOVONORM [Concomitant]
     Indication: TYPE 2 DIABETES MELLITUS
     Route: 065
  9. LANTUS [Concomitant]
     Indication: TYPE 2 DIABETES MELLITUS
     Route: 065

REACTIONS (4)
  - HYPOTENSION [None]
  - LOSS OF CONSCIOUSNESS [None]
  - MALAISE [None]
  - SUPRAVENTRICULAR TACHYCARDIA [None]
